FAERS Safety Report 17445253 (Version 2)
Quarter: 2020Q1

REPORT INFORMATION
  Report Type: Spontaneous
  Country: US (occurrence: US)
  Receive Date: 20200221
  Receipt Date: 20200304
  Transmission Date: 20200409
  Serious: No
  Sender: FDA-Public Use
  Company Number: US-PFIZER INC-2020078841

PATIENT
  Age: 74 Year
  Sex: Male
  Weight: 72.56 kg

DRUGS (1)
  1. VIAGRA [Suspect]
     Active Substance: SILDENAFIL CITRATE
     Indication: SEXUALLY ACTIVE
     Dosage: 100 MG, WEEKLY
     Dates: start: 2014

REACTIONS (1)
  - Dry skin [Recovered/Resolved]
